FAERS Safety Report 14816554 (Version 2)
Quarter: 2018Q3

REPORT INFORMATION
  Report Type: Spontaneous
  Country: US (occurrence: US)
  Receive Date: 20180426
  Receipt Date: 20180706
  Transmission Date: 20181010
  Serious: No
  Sender: FDA-Public Use
  Company Number: US-ASTRAZENECA-2018SE39330

PATIENT
  Age: 25611 Day
  Sex: Female
  Weight: 79.8 kg

DRUGS (3)
  1. BYDUREON BCISE [Suspect]
     Active Substance: EXENATIDE
     Indication: TYPE 2 DIABETES MELLITUS
     Route: 058
     Dates: start: 20180319
  2. METFORMIN [Suspect]
     Active Substance: METFORMIN HYDROCHLORIDE
     Route: 065
  3. BYDUREON [Suspect]
     Active Substance: EXENATIDE
     Indication: TYPE 2 DIABETES MELLITUS
     Route: 058
     Dates: start: 2017, end: 2018

REACTIONS (7)
  - Abdominal pain upper [Unknown]
  - Drug hypersensitivity [Unknown]
  - Increased upper airway secretion [Unknown]
  - Throat irritation [Unknown]
  - Dysphonia [Unknown]
  - Dysphagia [Unknown]
  - Sinus disorder [Unknown]

NARRATIVE: CASE EVENT DATE: 20180319
